FAERS Safety Report 8005831-7 (Version None)
Quarter: 2011Q4

REPORT INFORMATION
  Report Type: 
  Country: None (occurrence: None)
  Receive Date: 20111223
  Receipt Date: 20111214
  Transmission Date: 20120403
  Serious: Yes (Hospitalization, Other)
  Sender: FDA-Public Use
  Company Number: JP-ROCHE-1003841

PATIENT
  Sex: Male
  Weight: 57 kg

DRUGS (6)
  1. AVASTIN [Suspect]
     Indication: LUNG ADENOCARCINOMA
     Route: 041
     Dates: start: 20091225, end: 20100114
  2. PACLITAXEL [Concomitant]
     Indication: LUNG ADENOCARCINOMA
     Dosage: DOSAGE IS UNCERTAIN.
     Route: 041
     Dates: start: 20091225, end: 20100106
  3. PACLITAXEL [Suspect]
     Indication: LUNG ADENOCARCINOMA METASTATIC
     Dosage: DOSAGE IS UNCERTAIN.
     Route: 041
     Dates: start: 20091225, end: 20100114
  4. RESTAMIN [Concomitant]
     Indication: RHINITIS ALLERGIC
     Route: 048
     Dates: start: 20091225, end: 20100110
  5. CARBOPLATIN [Concomitant]
     Indication: LUNG ADENOCARCINOMA
     Dosage: DOSAGE IS UNCERTAIN.
     Route: 041
     Dates: start: 20091225, end: 20091225
  6. CARBOPLATIN [Concomitant]
     Indication: LUNG ADENOCARCINOMA METASTATIC
     Dosage: DOSAGE IS UNCERTAIN.
     Route: 041
     Dates: start: 20100114, end: 20100114

REACTIONS (6)
  - HYPOAESTHESIA [None]
  - ARTHRALGIA [None]
  - HAEMOPTYSIS [None]
  - CHEST PAIN [None]
  - GASTRITIS [None]
  - INSOMNIA [None]
